FAERS Safety Report 8277069-X (Version None)
Quarter: 2012Q2

REPORT INFORMATION
  Report Type: 
  Country: None (occurrence: None)
  Receive Date: 20120412
  Receipt Date: 20120403
  Transmission Date: 20120825
  Serious: Yes (Other)
  Sender: FDA-Public Use
  Company Number: PHNR2006AU01735

PATIENT
  Sex: Male

DRUGS (4)
  1. CLOZARIL [Suspect]
     Indication: SCHIZOPHRENIA
     Dosage: 900 MG, UNK
     Dates: start: 20001001
  2. LANSOPRAZOLE [Concomitant]
     Dosage: 30 MG, TID
     Dates: start: 20020101
  3. VALPROATE SODIUM [Concomitant]
     Dosage: 500 MG, BID
     Dates: start: 20000101
  4. CLOZAPINE [Suspect]
     Dates: start: 20061220

REACTIONS (4)
  - THROMBOCYTOPENIA [None]
  - SPLENOMEGALY [None]
  - PLATELET COUNT DECREASED [None]
  - NAUSEA [None]
